FAERS Safety Report 4997433-1 (Version None)
Quarter: 2006Q2

REPORT INFORMATION
  Report Type: 
  Country: None (occurrence: None)
  Receive Date: 20060509
  Receipt Date: 20051027
  Transmission Date: 20061013
  Serious: Yes (Hospitalization, Disabling, Other)
  Sender: FDA-Public Use
  Company Number: US-MERCK-0510USA09962

PATIENT
  Age: 55 Year
  Sex: Female
  Weight: 77 kg

DRUGS (10)
  1. VIOXX [Suspect]
     Indication: OSTEOARTHRITIS
     Route: 048
     Dates: start: 19991112, end: 20000509
  2. VIOXX [Suspect]
     Route: 048
     Dates: start: 20010316, end: 20011025
  3. VIOXX [Suspect]
     Route: 048
     Dates: start: 20020611, end: 20020916
  4. VIOXX [Suspect]
     Route: 048
     Dates: start: 20020917, end: 20020921
  5. VIOXX [Suspect]
     Route: 048
     Dates: start: 20020922, end: 20030504
  6. VIOXX [Suspect]
     Route: 048
     Dates: start: 20030505, end: 20030509
  7. VIOXX [Suspect]
     Route: 048
     Dates: start: 20030510, end: 20041004
  8. PRILOSEC [Concomitant]
     Route: 065
  9. PROZAC [Concomitant]
     Route: 065
  10. LIDOCAINE [Suspect]
     Route: 051
     Dates: start: 20030214

REACTIONS (20)
  - ANAEMIA [None]
  - ASTHMA [None]
  - CHEST PAIN [None]
  - CHRONIC OBSTRUCTIVE PULMONARY DISEASE [None]
  - DEEP VEIN THROMBOSIS [None]
  - DRUG INEFFECTIVE [None]
  - FLUSHING [None]
  - HYPOXIA [None]
  - JOINT EFFUSION [None]
  - MENISCUS LESION [None]
  - MITRAL VALVE PROLAPSE [None]
  - MYOCARDIAL INFARCTION [None]
  - NAUSEA [None]
  - OSTEOARTHRITIS [None]
  - OSTEOPOROSIS [None]
  - OXYGEN SATURATION DECREASED [None]
  - PLANTAR FASCIITIS [None]
  - PULMONARY EMBOLISM [None]
  - SUPRAVENTRICULAR EXTRASYSTOLES [None]
  - THROMBOSIS [None]
